FAERS Safety Report 4642694-1 (Version None)
Quarter: 2005Q2

REPORT INFORMATION
  Report Type: 
  Country: None (occurrence: None)
  Receive Date: 20050422
  Receipt Date: 20050121
  Transmission Date: 20051028
  Serious: Yes (Hospitalization, Other)
  Sender: FDA-Public Use
  Company Number: PHFR2005GB00663

PATIENT
  Age: 67 Year
  Sex: Male
  Weight: 55 kg

DRUGS (7)
  1. VALPROATE SODIUM [Concomitant]
     Indication: AFFECTIVE DISORDER
     Dosage: 400 MG/DAY
     Route: 065
  2. CLOZARIL [Suspect]
     Indication: SCHIZOPHRENIA
     Dosage: 225MG/DAY
     Route: 048
     Dates: start: 20050105, end: 20050121
  3. CLOZARIL [Suspect]
     Dosage: UNK, UNK
     Route: 048
  4. CLOZARIL [Suspect]
     Dosage: 25 MG, BID
  5. METFORMIN [Concomitant]
     Dosage: 500 MG, BID
     Route: 048
  6. SENNA [Concomitant]
     Dosage: 2 NOCTE
     Route: 048
  7. PANTOPRAZOLE SODIUM [Concomitant]
     Dosage: 40MG

REACTIONS (18)
  - ASTHENIA [None]
  - BLOOD GLUCOSE INCREASED [None]
  - BRADYKINESIA [None]
  - DEHYDRATION [None]
  - EXTRAPYRAMIDAL DISORDER [None]
  - GAIT DISTURBANCE [None]
  - HEART RATE INCREASED [None]
  - HYPOTENSION [None]
  - LYMPHOCYTE COUNT DECREASED [None]
  - MUSCLE RIGIDITY [None]
  - NEUTROPHIL COUNT INCREASED [None]
  - SALIVARY HYPERSECRETION [None]
  - SEDATION [None]
  - SOMNOLENCE [None]
  - TACHYCARDIA [None]
  - TREMOR [None]
  - URINARY INCONTINENCE [None]
  - WHITE BLOOD CELL COUNT INCREASED [None]
